FAERS Safety Report 18386553 (Version 1)
Quarter: 2020Q4

REPORT INFORMATION
  Report Type: Spontaneous
  Country: AR (occurrence: AR)
  Receive Date: 20201015
  Receipt Date: 20201015
  Transmission Date: 20210114
  Serious: Yes (Other)
  Sender: FDA-Public Use
  Company Number: AR-PFIZER INC-2020318899

PATIENT
  Age: 79 Year
  Sex: Male

DRUGS (1)
  1. SUTENT [Suspect]
     Active Substance: SUNITINIB MALATE
     Indication: METASTATIC RENAL CELL CARCINOMA
     Dosage: 50 MG, CYCLIC (DAILY, SCHEME 4/2 REST)
     Dates: start: 20200707, end: 20200803

REACTIONS (6)
  - Ocular vascular disorder [Unknown]
  - Orchitis noninfective [Unknown]
  - Neoplasm progression [Unknown]
  - Intestinal ischaemia [Unknown]
  - Balanoposthitis [Unknown]
  - Hypertension [Unknown]
